FAERS Safety Report 9762827 (Version 1)
Quarter: 2013Q4

REPORT INFORMATION
  Report Type: Spontaneous
  Country: US (occurrence: US)
  Receive Date: 20131216
  Receipt Date: 20131216
  Transmission Date: 20140711
  Serious: No
  Sender: FDA-Public Use
  Company Number: US-B.I. PHARMACEUTICALS,INC./RIDGEFIELD-2013-BI-40443BP

PATIENT
  Age: 50 Year
  Sex: Female
  Weight: 64 kg

DRUGS (5)
  1. COMBIVENT [Suspect]
     Indication: CHRONIC OBSTRUCTIVE PULMONARY DISEASE
     Dosage: STRENGTH: 20 MCG / 100 MCG; DAILY DOSE: 60 MCG/300MCG
     Route: 055
     Dates: start: 201309
  2. LORAZEPAM [Concomitant]
     Indication: ANXIETY
     Dosage: 1 MG
     Route: 048
     Dates: start: 2012
  3. METFORMIN [Concomitant]
     Indication: DIABETES MELLITUS
     Dosage: 800 MG
     Route: 048
     Dates: start: 2012
  4. SYMBICORT [Concomitant]
     Indication: CHRONIC OBSTRUCTIVE PULMONARY DISEASE
     Dosage: (INHALATION SOLUTION) STRENGTH: 2 PUFFS; DAILY DOSE: 4 PUFFS
     Route: 055
     Dates: start: 2013
  5. VENTOLIN NEBULIZER [Concomitant]
     Indication: INHALATION THERAPY
     Route: 055
     Dates: start: 2012

REACTIONS (1)
  - Chronic obstructive pulmonary disease [Recovered/Resolved]
